FAERS Safety Report 8723284 (Version 2)
Quarter: 2012Q4

REPORT INFORMATION
  Report Type: 
  Country: CO (occurrence: CO)
  Receive Date: 20120814
  Receipt Date: 20121120
  Transmission Date: 20130627
  Serious: Yes (Hospitalization)
  Sender: FDA-Public Use
  Company Number: CO-BAXTER-2012BAX013352

PATIENT
  Age: 31 Year
  Sex: Male
  Weight: 48 kg

DRUGS (1)
  1. ADVATE [Suspect]
     Indication: HEMOPHILIA
     Dosage: FIRST ADMINISTRATION
     Route: 042
     Dates: start: 20120727, end: 20120727

REACTIONS (4)
  - Vomiting [Recovered/Resolved]
  - Diarrhoea [Recovered/Resolved]
  - Gingival bleeding [Not Recovered/Not Resolved]
  - Faeces discoloured [Recovered/Resolved]
